FAERS Safety Report 7606605-9 (Version None)
Quarter: 2011Q3

REPORT INFORMATION
  Report Type: 
  Country: None (occurrence: None)
  Receive Date: 20110713
  Receipt Date: 20110705
  Transmission Date: 20111222
  Serious: Yes (Other)
  Sender: FDA-Public Use
  Company Number: PHHY2011DE59943

PATIENT
  Sex: Female

DRUGS (2)
  1. EXTAVIA [Suspect]
     Indication: MULTIPLE SCLEROSIS
     Dosage: 250 UG, QOD
     Route: 058
     Dates: start: 20110620, end: 20110620
  2. EXTAVIA [Suspect]
     Dosage: 187.5 UG, QOD
     Route: 058
     Dates: start: 20110101

REACTIONS (2)
  - PARESIS [None]
  - MUSCLE SPASTICITY [None]
